FAERS Safety Report 12559655 (Version 1)
Quarter: 2016Q3

REPORT INFORMATION
  Report Type: Spontaneous
  Country: US (occurrence: US)
  Receive Date: 20160715
  Receipt Date: 20160715
  Transmission Date: 20161109
  Serious: No
  Sender: FDA-Public Use
  Company Number: US-JNJFOC-20160422181

PATIENT
  Age: 56 Year
  Sex: Female
  Weight: 58.51 kg

DRUGS (1)
  1. SUDAFED [Suspect]
     Active Substance: PSEUDOEPHEDRINE HYDROCHLORIDE
     Indication: RESPIRATORY TRACT CONGESTION
     Dosage: IN THE LAST 3 MONTHS
     Route: 048

REACTIONS (2)
  - Incorrect dose administered [Recovered/Resolved]
  - Headache [Recovered/Resolved]
